FAERS Safety Report 5647981-6 (Version None)
Quarter: 2008Q1

REPORT INFORMATION
  Report Type: 
  Country: None (occurrence: None)
  Receive Date: 20080228
  Receipt Date: 20080213
  Transmission Date: 20080703
  Serious: Yes (Other)
  Sender: FDA-Public Use
  Company Number: 1022556-2008-00086

PATIENT
  Sex: Female

DRUGS (2)
  1. UNISOM [Suspect]
     Indication: SLEEP DISORDER
     Dosage: 1 GELTAB
     Dates: start: 20080106
  2. INSULIN [Concomitant]

REACTIONS (15)
  - ABDOMINAL PAIN [None]
  - BACK PAIN [None]
  - BLOOD PRESSURE SYSTOLIC INCREASED [None]
  - CHEST PAIN [None]
  - CHILLS [None]
  - DRUG TOXICITY [None]
  - HEADACHE [None]
  - HEART RATE INCREASED [None]
  - HYPERHIDROSIS [None]
  - IMPAIRED WORK ABILITY [None]
  - INFLUENZA [None]
  - MALAISE [None]
  - NASOPHARYNGITIS [None]
  - RENAL IMPAIRMENT [None]
  - SELF-INDUCED VOMITING [None]
